FAERS Safety Report 6282514-5 (Version None)
Quarter: 2009Q3

REPORT INFORMATION
  Report Type: 
  Country: None (occurrence: None)
  Receive Date: 20090724
  Receipt Date: 20090720
  Transmission Date: 20100115
  Serious: Yes (Other)
  Sender: FDA-Public Use
  Company Number: US-AVENTIS-200916316US

PATIENT
  Sex: Female

DRUGS (5)
  1. LANTUS [Suspect]
     Route: 058
     Dates: start: 20060101, end: 20090713
  2. METFORMIN HCL [Concomitant]
     Route: 048
  3. ANTIINFLAMMATORY/ANTIRHEUMATIC PRODUCTS [Concomitant]
     Indication: ARTHRITIS
     Dosage: DOSE: UNK
     Route: 048
  4. EYE DROPS [Concomitant]
     Dosage: DOSE: UNK
     Route: 047
  5. ANTITHROMBOTIC AGENTS [Concomitant]
     Dosage: DOSE: UNK

REACTIONS (3)
  - BLOOD GLUCOSE INCREASED [None]
  - NIGHT BLINDNESS [None]
  - RETINOPATHY [None]
